FAERS Safety Report 5725858-5 (Version None)
Quarter: 2008Q2

REPORT INFORMATION
  Report Type: 
  Country: None (occurrence: None)
  Receive Date: 20080429
  Receipt Date: 20080414
  Transmission Date: 20081010
  Serious: Yes (Other)
  Sender: FDA-Public Use
  Company Number: 2008S1004401

PATIENT
  Age: 65 Year
  Sex: Male

DRUGS (14)
  1. SALBUTAMOL [Suspect]
     Indication: DRUG USE FOR UNKNOWN INDICATION
  2. RISPERIDONE [Suspect]
  3. METAXALONE [Suspect]
  4. HEPARIN [Suspect]
  5. OXYCODONE HCL [Suspect]
  6. ESCITALOPRAM [Suspect]
  7. BUPROPION HCL [Suspect]
  8. CLONIDINE [Suspect]
  9. CORTICOSTEROIDS [Suspect]
  10. METHADONE HCL [Suspect]
  11. HALOPERIDOL [Suspect]
  12. ACYCLOVIR SODIUM [Suspect]
  13. VANCOMYCIN [Suspect]
  14. LAMOTRIGINE [Suspect]

REACTIONS (1)
  - DEATH [None]
